FAERS Safety Report 23963809 (Version 1)
Quarter: 2024Q2

REPORT INFORMATION
  Report Type: Spontaneous
  Country: US (occurrence: US)
  Receive Date: 20240611
  Receipt Date: 20240611
  Transmission Date: 20240716
  Serious: No
  Sender: FDA-Public Use
  Company Number: US-RIGEL Pharmaceuticals, INC-2023FOS000780

PATIENT
  Sex: Male
  Weight: 76.644 kg

DRUGS (2)
  1. TAVALISSE [Suspect]
     Active Substance: FOSTAMATINIB
     Indication: Immune thrombocytopenia
     Dosage: 100 MG, ONCE  A WEEK
     Route: 048
     Dates: end: 202307
  2. TAVALISSE [Suspect]
     Active Substance: FOSTAMATINIB
     Dosage: 100 MG, TWO DAY PER WEEK
     Route: 048
     Dates: start: 20210910

REACTIONS (3)
  - Emotional disorder [Unknown]
  - Product dose omission issue [Unknown]
  - Product prescribing issue [Unknown]
